FAERS Safety Report 9325553 (Version 2)
Quarter: 2013Q2

REPORT INFORMATION
  Report Type: Report from Study
  Country: AT (occurrence: AT)
  Receive Date: 20130604
  Receipt Date: 20130607
  Transmission Date: 20140414
  Serious: Yes (Hospitalization)
  Sender: FDA-Public Use
  Company Number: PHHY2013AT055369

PATIENT
  Age: 57 Year
  Sex: Female
  Weight: 89 kg

DRUGS (16)
  1. MYCOPHENOLIC ACID [Suspect]
     Indication: IMMUNOSUPPRESSION
     Dosage: 1440 MG, DAILY
     Dates: start: 20120726
  2. MYCOPHENOLIC ACID [Suspect]
     Dosage: 720 MG, DAILY
     Dates: start: 20130504, end: 20130516
  3. ADVAGRAF [Suspect]
     Indication: IMMUNOSUPPRESSION
     Dosage: 3 MG, DAILY
     Route: 048
     Dates: start: 20120726
  4. THROMBO ASS [Concomitant]
     Indication: THROMBOSIS PROPHYLAXIS
     Dosage: 50 MG, UNK
     Route: 048
  5. PANTOLOC [Concomitant]
     Indication: PROPHYLAXIS AGAINST GASTROINTESTINAL ULCER
     Dosage: 40 MG, UNK
     Route: 048
     Dates: start: 201207
  6. CITALOPRAM [Concomitant]
     Indication: DEPRESSION
     Dosage: 10 MG, UNK
     Route: 048
     Dates: start: 201207
  7. REDUCTO [Concomitant]
     Indication: NAUSEA
     Dosage: 3 DF, DAILY
     Route: 048
     Dates: start: 201207
  8. REDUCTO [Concomitant]
     Indication: VOMITING
  9. ITERIUM [Concomitant]
     Indication: HYPERTENSION
     Dosage: 1 MG, UNK
     Route: 048
     Dates: start: 20120809
  10. CARVEDILOL [Concomitant]
     Indication: HYPERTENSION
     Dosage: 12.5 MG, UNK
     Route: 048
     Dates: start: 20120927
  11. SAROTEN [Concomitant]
     Indication: DEPRESSION
     Dosage: 25 MG, PRETRANSPLANT
     Route: 048
  12. EXFORGE [Concomitant]
     Indication: HYPERTENSION
     Dosage: 5MG/60MG
     Route: 048
     Dates: start: 20120813
  13. DIFLUCAN [Concomitant]
     Indication: NAUSEA
     Dosage: 200 MG, UNK
     Route: 048
     Dates: start: 20130516
  14. DIFLUCAN [Concomitant]
     Indication: VOMITING
  15. CIPROXIN [Concomitant]
     Indication: URINARY TRACT INFECTION
     Dosage: 250 MG, UNK
     Route: 048
     Dates: start: 20130516
  16. LOVENOX [Concomitant]
     Indication: THROMBOSIS PROPHYLAXIS
     Dosage: 40 MG, UNK
     Route: 058
     Dates: start: 20130516

REACTIONS (3)
  - Hydronephrosis [Recovered/Resolved]
  - Pneumonia [Recovered/Resolved]
  - Urinary tract infection [Recovered/Resolved]
